FAERS Safety Report 8976717 (Version 1)
Quarter: 2012Q4

REPORT INFORMATION
  Report Type: 
  Country: US (occurrence: US)
  Receive Date: 20121220
  Receipt Date: 20121220
  Transmission Date: 20130627
  Serious: Yes (Death)
  Sender: FDA-Public Use
  Company Number: US-PFIZER INC-2012320114

PATIENT
  Age: 75 Year
  Sex: Male

DRUGS (1)
  1. SUTENT [Suspect]
     Indication: RENAL CANCER
     Dosage: 50 mg, 1x/day
     Dates: start: 20121113

REACTIONS (4)
  - Disease progression [Fatal]
  - Renal cancer [Fatal]
  - Intestinal obstruction [Fatal]
  - Pleural effusion [Fatal]
